FAERS Safety Report 24014726 (Version 1)
Quarter: 2024Q2

REPORT INFORMATION
  Report Type: Report from Study
  Country: IT (occurrence: IT)
  Receive Date: 20240626
  Receipt Date: 20240626
  Transmission Date: 20240715
  Serious: Yes (Death, Hospitalization)
  Sender: FDA-Public Use
  Company Number: None

PATIENT
  Age: 81 Year
  Sex: Female
  Weight: 65 kg

DRUGS (2)
  1. PACLITAXEL [Suspect]
     Active Substance: PACLITAXEL
     Indication: Breast neoplasm
     Dosage: GIORNI 1-8-15 OGNI 28 GIORNI
     Dates: start: 20240304, end: 20240515
  2. PEMBROLIZUMAB [Suspect]
     Active Substance: PEMBROLIZUMAB
     Indication: Breast neoplasm
     Dosage: 200 MG OGNI 21 GIORNI
     Dates: start: 20240430, end: 20240520

REACTIONS (1)
  - Miller Fisher syndrome [Fatal]

NARRATIVE: CASE EVENT DATE: 20240524
